FAERS Safety Report 7110333-6 (Version None)
Quarter: 2010Q4

REPORT INFORMATION
  Report Type: 
  Country: None (occurrence: None)
  Receive Date: 20101118
  Receipt Date: 20101110
  Transmission Date: 20110411
  Serious: No
  Sender: FDA-Public Use
  Company Number: US-PFIZER INC-2010145320

PATIENT
  Sex: Female
  Weight: 48.98 kg

DRUGS (1)
  1. DEPO-SUBQ PROVERA 104 [Suspect]
     Indication: CONTRACEPTION
     Dosage: UNK
     Route: 058
     Dates: end: 20090101

REACTIONS (3)
  - ANXIETY [None]
  - GASTRIC DISORDER [None]
  - METRORRHAGIA [None]
